FAERS Safety Report 24211021 (Version 1)
Quarter: 2024Q3

REPORT INFORMATION
  Report Type: Spontaneous
  Country: US (occurrence: None)
  Receive Date: 20240813
  Receipt Date: 20240813
  Transmission Date: 20241016
  Serious: Yes (unspecified)
  Sender: Public
  Company Number: None

PATIENT
  Age: 61 Year
  Sex: Female
  Weight: 71.55 kg

DRUGS (3)
  1. TRULICITY [Suspect]
     Active Substance: DULAGLUTIDE
     Indication: Diabetes mellitus
     Dosage: 1 INJECTION ONCE A WEEK SUBCUTANEOUS ?
     Route: 058
     Dates: start: 20240810
  2. Amolodipine/valsartan [Concomitant]
  3. LANTUS [Concomitant]
     Active Substance: INSULIN GLARGINE

REACTIONS (7)
  - Dizziness [None]
  - Asthenia [None]
  - Vomiting [None]
  - Feeling abnormal [None]
  - Dysstasia [None]
  - Vision blurred [None]
  - Feeling drunk [None]

NARRATIVE: CASE EVENT DATE: 20240810
